FAERS Safety Report 9807721 (Version 2)
Quarter: 2014Q1

REPORT INFORMATION
  Report Type: Spontaneous
  Country: US (occurrence: US)
  Receive Date: 20140110
  Receipt Date: 20140121
  Transmission Date: 20141002
  Serious: Yes (Life-Threatening, Hospitalization, Other)
  Sender: FDA-Public Use
  Company Number: US-ROCHE-1328684

PATIENT
  Age: 72 Year
  Sex: Female

DRUGS (6)
  1. ERIVEDGE [Suspect]
     Indication: BASAL CELL CARCINOMA
     Route: 048
     Dates: start: 201310, end: 201312
  2. GLIPIZIDE [Concomitant]
  3. INSULIN [Concomitant]
     Route: 065
  4. ASA [Concomitant]
     Route: 048
  5. LISINOPRIL [Concomitant]
     Route: 065
  6. SIMVASTATIN [Concomitant]
     Route: 065

REACTIONS (6)
  - Atrial fibrillation [Unknown]
  - Dehydration [Unknown]
  - Nausea [Recovered/Resolved]
  - Hypophagia [Unknown]
  - Constipation [Recovered/Resolved]
  - Renal failure [Unknown]
